FAERS Safety Report 10157430 (Version 1)
Quarter: 2014Q2

REPORT INFORMATION
  Report Type: Spontaneous
  Country: FR (occurrence: FR)
  Receive Date: 20140507
  Receipt Date: 20140507
  Transmission Date: 20141212
  Serious: Yes (Hospitalization)
  Sender: FDA-Public Use
  Company Number: FR-SA-2014SA054596

PATIENT
  Age: 77 Year
  Sex: Male

DRUGS (10)
  1. LASILIX [Suspect]
     Indication: PRODUCT USED FOR UNKNOWN INDICATION
     Route: 048
  2. SOTALEX [Suspect]
     Indication: PRODUCT USED FOR UNKNOWN INDICATION
     Route: 065
  3. GARDENAL [Concomitant]
     Indication: EPILEPSY
  4. COVERSYL [Concomitant]
     Dosage: DOSAGE WAS INCREASED TO 5 MG QD ON 17-FEB-2014
  5. COVERSYL [Concomitant]
     Dosage: DOSAGE WAS INCREASED TO 5 MG QD ON 17-FEB-2014
     Dates: start: 20140217
  6. SPECIAFOLDINE [Concomitant]
  7. CACIT D3 [Concomitant]
  8. KARDEGIC [Concomitant]
  9. ZYLORIC [Concomitant]
  10. VIDAZA [Concomitant]
     Dosage: 5 DAYS PER MONTH
     Dates: start: 20130313

REACTIONS (2)
  - Cardio-respiratory arrest [Recovered/Resolved]
  - Hypokalaemia [Recovered/Resolved]
